FAERS Safety Report 25058473 (Version 1)
Quarter: 2025Q1

REPORT INFORMATION
  Report Type: Spontaneous
  Country: JP (occurrence: JP)
  Receive Date: 20250310
  Receipt Date: 20250310
  Transmission Date: 20250408
  Serious: Yes (Hospitalization, Other)
  Sender: BRISTOL-MYERS SQUIBB COMPANY
  Company Number: JP-ONO-2025JP004016

PATIENT
  Age: 64 Year
  Sex: Male

DRUGS (3)
  1. OPDIVO [Suspect]
     Active Substance: NIVOLUMAB
     Indication: Oesophageal carcinoma
     Route: 041
  2. FLUOROURACIL [Concomitant]
     Active Substance: FLUOROURACIL
     Indication: Oesophageal carcinoma
  3. CISPLATIN [Concomitant]
     Active Substance: CISPLATIN
     Indication: Oesophageal carcinoma

REACTIONS (6)
  - Cerebral infarction [Unknown]
  - Type 1 diabetes mellitus [Unknown]
  - Immune-mediated adrenal insufficiency [Unknown]
  - Immune-mediated hypothyroidism [Unknown]
  - Neutrophil count decreased [Unknown]
  - Rash [Unknown]
